FAERS Safety Report 13065243 (Version 1)
Quarter: 2016Q4

REPORT INFORMATION
  Report Type: Spontaneous
  Country: US (occurrence: US)
  Receive Date: 20161227
  Receipt Date: 20161227
  Transmission Date: 20170207
  Serious: Yes (Other)
  Sender: FDA-Public Use
  Company Number: US-PFIZER INC-2016588242

PATIENT
  Age: 25 Year
  Sex: Female

DRUGS (5)
  1. IDARUBICIN HCL [Suspect]
     Active Substance: IDARUBICIN HYDROCHLORIDE
     Dosage: UNK, CYCLIC (4-CYCLES OF POST-REMISSION)
  2. CYTARABINE. [Suspect]
     Active Substance: CYTARABINE
     Dosage: UNK
     Dates: end: 201309
  3. IDARUBICIN HCL [Suspect]
     Active Substance: IDARUBICIN HYDROCHLORIDE
     Dosage: UNK, CYCLIC (2 CYCLES)
  4. CYTARABINE. [Suspect]
     Active Substance: CYTARABINE
     Dosage: UNK UNK, CYCLIC (4-CYCLES OF POST-REMISSION)
  5. CYTARABINE. [Suspect]
     Active Substance: CYTARABINE
     Dosage: UNK, CYCLIC (TWO CYCLES)

REACTIONS (4)
  - Pneumonia fungal [Unknown]
  - Blast cells present [Unknown]
  - Febrile neutropenia [Not Recovered/Not Resolved]
  - Disease recurrence [Not Recovered/Not Resolved]
